FAERS Safety Report 5366304-3 (Version None)
Quarter: 2007Q2

REPORT INFORMATION
  Report Type: 
  Country: None (occurrence: None)
  Receive Date: 20070619
  Receipt Date: 20070619
  Transmission Date: 20071010
  Serious: Yes (Death)
  Sender: FDA-Public Use
  Company Number: None

PATIENT
  Sex: Female
  Weight: 69 kg

DRUGS (5)
  1. CYCLOPHOSPHAMIDE [Suspect]
     Dosage: 1992 MG
  2. DEXAMETHASONE 0.5MG TAB [Suspect]
     Dosage: 112 MG
     Dates: end: 20070502
  3. ELSPAR [Suspect]
     Dosage: 29880 UNIT
     Dates: end: 20070506
  4. VINCRISTINE SULFATE [Suspect]
     Dosage: 3 MG
     Dates: end: 20070503
  5. ALLOPURINOL [Suspect]
     Dosage: 4200 MG
     Dates: end: 20070510

REACTIONS (14)
  - ABDOMINAL PAIN [None]
  - BACTERAEMIA [None]
  - BLOOD LACTIC ACID INCREASED [None]
  - BOWEL SOUNDS ABNORMAL [None]
  - CARDIO-RESPIRATORY ARREST [None]
  - FEEDING DISORDER [None]
  - FUNGAEMIA [None]
  - GENERAL PHYSICAL HEALTH DETERIORATION [None]
  - HERPES ZOSTER [None]
  - HYPOTENSION [None]
  - NEUTROPENIC SEPSIS [None]
  - PULMONARY OEDEMA [None]
  - RESPIRATORY FAILURE [None]
  - SEPTIC EMBOLUS [None]
